FAERS Safety Report 9165753 (Version 1)
Quarter: 2013Q1

REPORT INFORMATION
  Report Type: Spontaneous
  Country: US (occurrence: None)
  Receive Date: 20130320
  Receipt Date: 20130320
  Transmission Date: 20140127
  Serious: Yes (Other)
  Sender: FDA-Public Use
  Company Number: None

PATIENT
  Age: 26 Year
  Sex: Female
  Weight: 49.9 kg

DRUGS (1)
  1. SUBOXONE/SUBLINUL FILM  8MG/2MG  MANUFACTURED FOR RECKITT BENCKSER PHARMACEUTICALS [Suspect]
     Dosage: 2 STRIPS A DAY, MORNING/EVENING, MOUTH
     Route: 048
     Dates: start: 20130213, end: 20130219

REACTIONS (5)
  - Headache [None]
  - Lymphadenopathy [None]
  - Exophthalmos [None]
  - Intraocular pressure increased [None]
  - Drug ineffective [None]
